FAERS Safety Report 12767704 (Version 5)
Quarter: 2017Q1

REPORT INFORMATION
  Report Type: Spontaneous
  Country: US (occurrence: US)
  Receive Date: 20160921
  Receipt Date: 20170228
  Transmission Date: 20170428
  Serious: Yes (Other)
  Sender: FDA-Public Use
  Company Number: US-ALLERGAN-1669121US

PATIENT
  Age: 45 Year
  Sex: Male
  Weight: 74.83 kg

DRUGS (4)
  1. BACTRIM [Concomitant]
     Active Substance: SULFAMETHOXAZOLE\TRIMETHOPRIM
     Indication: PRODUCT USED FOR UNKNOWN INDICATION
     Dosage: 500 MG, BID
     Dates: start: 20160704, end: 20160831
  2. RAPAFLO [Suspect]
     Active Substance: SILODOSIN
     Dosage: UNK
  3. RAPAFLO [Suspect]
     Active Substance: SILODOSIN
     Indication: DYSURIA
     Dosage: 8 MG, QD
     Route: 048
     Dates: start: 20160704, end: 20160831
  4. CIPROFLOXACIN. [Concomitant]
     Active Substance: CIPROFLOXACIN
     Indication: PRODUCT USED FOR UNKNOWN INDICATION
     Dosage: 500 MG, BID
     Dates: start: 20160704, end: 20160720

REACTIONS (3)
  - Prostate cancer [Unknown]
  - Off label use [Unknown]
  - Urethral pain [Unknown]

NARRATIVE: CASE EVENT DATE: 201607
